FAERS Safety Report 8209346-2 (Version None)
Quarter: 2012Q1

REPORT INFORMATION
  Report Type: 
  Country: None (occurrence: None)
  Receive Date: 20120314
  Receipt Date: 20120312
  Transmission Date: 20120608
  Serious: No
  Sender: FDA-Public Use
  Company Number: US-PFIZER INC-2011110251

PATIENT

DRUGS (1)
  1. BICILLIN C-R 900/300 [Suspect]
     Dosage: 1200000 IU, TWICE WEEKLY
     Route: 030

REACTIONS (2)
  - INJECTION SITE PAIN [None]
  - BURNING SENSATION [None]
